FAERS Safety Report 21298678 (Version 1)
Quarter: 2022Q3

REPORT INFORMATION
  Report Type: Spontaneous
  Country: ES (occurrence: ES)
  Receive Date: 20220906
  Receipt Date: 20220906
  Transmission Date: 20221026
  Serious: Yes (Hospitalization, Other)
  Sender: FDA-Public Use
  Company Number: ES-AMNEAL PHARMACEUTICALS-2022-AMRX-02370

PATIENT
  Age: 59 Year
  Sex: Female

DRUGS (1)
  1. FYLNETRA [Suspect]
     Active Substance: PEGFILGRASTIM-PBBK
     Indication: Neutropenia
     Dosage: UNK
     Route: 065

REACTIONS (2)
  - Myocarditis [Recovered/Resolved]
  - Carotidynia [Recovered/Resolved]
